FAERS Safety Report 14920030 (Version 3)
Quarter: 2018Q3

REPORT INFORMATION
  Report Type: Report from Study
  Country: CA (occurrence: CA)
  Receive Date: 20180521
  Receipt Date: 20180920
  Transmission Date: 20181010
  Serious: Yes (Other)
  Sender: FDA-Public Use
  Company Number: CA-JNJFOC-20180518622

PATIENT
  Sex: Female
  Weight: 67 kg

DRUGS (1)
  1. REMICADE [Suspect]
     Active Substance: INFLIXIMAB
     Indication: CROHN^S DISEASE
     Dosage: STRENGTH = 100 MG
     Route: 042
     Dates: start: 20150219

REACTIONS (6)
  - Incision site complication [Unknown]
  - Skin exfoliation [Unknown]
  - Abdominal pain [Unknown]
  - Breast discolouration [Unknown]
  - Mastectomy [Unknown]
  - Drug ineffective [Unknown]
